FAERS Safety Report 13621830 (Version 1)
Quarter: 2017Q2

REPORT INFORMATION
  Report Type: Spontaneous
  Country: US (occurrence: US)
  Receive Date: 20170607
  Receipt Date: 20170607
  Transmission Date: 20170830
  Serious: No
  Sender: FDA-Public Use
  Company Number: US-ROCHE-1884320

PATIENT
  Sex: Female
  Weight: 63.56 kg

DRUGS (43)
  1. ZOLOFT [Suspect]
     Active Substance: SERTRALINE HYDROCHLORIDE
     Indication: PRODUCT USED FOR UNKNOWN INDICATION
     Route: 065
  2. MAGNESIUM OXIDE. [Concomitant]
     Active Substance: MAGNESIUM OXIDE
     Route: 048
  3. VITAMIN C [Concomitant]
     Active Substance: ASCORBIC ACID
     Route: 048
     Dates: start: 20100726
  4. VITAMIN E [Concomitant]
     Active Substance: .ALPHA.-TOCOPHEROL
     Dosage: 400 UNIT
     Route: 048
  5. LIMBREL [Concomitant]
     Active Substance: FLAVOCOXID
  6. NABUMETONE. [Concomitant]
     Active Substance: NABUMETONE
  7. SPIROLACTONE [Concomitant]
     Active Substance: SPIRONOLACTONE
  8. CALCIUM CARBONATE. [Concomitant]
     Active Substance: CALCIUM CARBONATE
  9. DETROL LA [Suspect]
     Active Substance: TOLTERODINE TARTRATE
     Indication: PRODUCT USED FOR UNKNOWN INDICATION
     Route: 065
  10. METOPROLOL TARTRATE. [Concomitant]
     Active Substance: METOPROLOL TARTRATE
     Route: 048
     Dates: start: 20160401
  11. CYMBALTA [Concomitant]
     Active Substance: DULOXETINE HYDROCHLORIDE
  12. DESIPRAMINE [Concomitant]
     Active Substance: DESIPRAMINE
  13. FLONASE (UNITED STATES) [Concomitant]
  14. OXYBUTIN [Concomitant]
     Active Substance: OXYBUTYNIN
  15. PREDNISONE. [Concomitant]
     Active Substance: PREDNISONE
  16. ULTRACET [Concomitant]
     Active Substance: ACETAMINOPHEN\TRAMADOL HYDROCHLORIDE
  17. BETA CAROTENE [Concomitant]
     Route: 048
  18. KLONOPIN [Suspect]
     Active Substance: CLONAZEPAM
     Indication: PRODUCT USED FOR UNKNOWN INDICATION
     Route: 065
  19. LYRICA [Suspect]
     Active Substance: PREGABALIN
     Indication: NEUROPATHY PERIPHERAL
     Dosage: TWO 200MG CAPS AT BEDTIME
     Route: 048
     Dates: start: 20150402
  20. EFFEXOR [Suspect]
     Active Substance: VENLAFAXINE HYDROCHLORIDE
     Indication: PRODUCT USED FOR UNKNOWN INDICATION
     Route: 065
  21. ZEAXANTHIN [Concomitant]
     Active Substance: ZEAXANTHIN
     Route: 065
  22. NEURONTIN [Suspect]
     Active Substance: GABAPENTIN
     Indication: PRODUCT USED FOR UNKNOWN INDICATION
     Route: 065
  23. LOSARTAN POTASSIUM. [Concomitant]
     Active Substance: LOSARTAN POTASSIUM
     Route: 048
     Dates: start: 20160718
  24. CORTISONE [Concomitant]
     Active Substance: CORTISONE\HYDROCORTISONE
  25. AZELASTINE [Concomitant]
     Active Substance: AZELASTINE
  26. FLAXSEED [Concomitant]
     Active Substance: FLAX SEED
     Route: 048
  27. ATORVASTATIN [Concomitant]
     Active Substance: ATORVASTATIN
     Route: 048
  28. ALPHA LIPOIC ACID [Concomitant]
     Active Substance: .ALPHA.-LIPOIC ACID
  29. HYDROCHLOROTHIAZIDE. [Concomitant]
     Active Substance: HYDROCHLOROTHIAZIDE
  30. FLUTICASONE. [Concomitant]
     Active Substance: FLUTICASONE
  31. ATROPINE. [Concomitant]
     Active Substance: ATROPINE
     Route: 048
     Dates: start: 20161117
  32. NAPROXEN. [Suspect]
     Active Substance: NAPROXEN
     Indication: PRODUCT USED FOR UNKNOWN INDICATION
     Route: 065
  33. LIDOCAINE. [Concomitant]
     Active Substance: LIDOCAINE
  34. PANTOPRAZOLE SODIUM. [Concomitant]
     Active Substance: PANTOPRAZOLE SODIUM
     Route: 048
     Dates: start: 20160401
  35. LUTEIN [Concomitant]
     Active Substance: LUTEIN
     Route: 065
  36. XANAX [Suspect]
     Active Substance: ALPRAZOLAM
     Indication: PRODUCT USED FOR UNKNOWN INDICATION
     Route: 065
  37. NEURONTIN [Concomitant]
     Active Substance: GABAPENTIN
  38. ESTER-C (UNITED STATES) [Concomitant]
  39. OMEGA 3 [Concomitant]
     Active Substance: OMEGA-3 FATTY ACIDS
  40. VITAMIN D3 [Concomitant]
     Active Substance: CHOLECALCIFEROL
     Route: 048
     Dates: start: 20100726
  41. DOXYCYCLINE MONOHYDRATE [Concomitant]
     Active Substance: DOXYCYCLINE
  42. SAVELLA [Concomitant]
     Active Substance: MILNACIPRAN HYDROCHLORIDE
  43. LEVOTHYROXINE. [Concomitant]
     Active Substance: LEVOTHYROXINE
     Route: 048

REACTIONS (6)
  - Constipation [Unknown]
  - Hyperhidrosis [Unknown]
  - Nightmare [Unknown]
  - Insomnia [Unknown]
  - Ill-defined disorder [Unknown]
  - Drug ineffective [Unknown]
